FAERS Safety Report 6518724-9 (Version None)
Quarter: 2009Q4

REPORT INFORMATION
  Report Type: 
  Country: None (occurrence: None)
  Receive Date: 20091228
  Receipt Date: 20091222
  Transmission Date: 20100525
  Serious: Yes (Death, Disabling)
  Sender: FDA-Public Use
  Company Number: PHHY2009IT57598

PATIENT
  Sex: Female

DRUGS (4)
  1. ZOMETA [Suspect]
     Indication: METASTASES TO BONE
     Dosage: 4 MG, UNK
     Route: 042
     Dates: start: 20020701, end: 20041101
  2. CYCLOPHOSPHAMIDE [Concomitant]
  3. TAMOXIFEN CITRATE [Concomitant]
  4. FLUOROURACIL [Concomitant]
     Dosage: UNK

REACTIONS (2)
  - DEATH [None]
  - OSTEONECROSIS [None]
